FAERS Safety Report 18581905 (Version 1)
Quarter: 2020Q4

REPORT INFORMATION
  Report Type: Spontaneous
  Country: US (occurrence: US)
  Receive Date: 20201204
  Receipt Date: 20201204
  Transmission Date: 20210114
  Serious: Yes (Hospitalization)
  Sender: FDA-Public Use
  Company Number: None

PATIENT
  Age: 35 Year
  Sex: Male

DRUGS (1)
  1. SERTRALINE [Suspect]
     Active Substance: SERTRALINE HYDROCHLORIDE
     Route: 048
     Dates: start: 20201112, end: 20201130

REACTIONS (8)
  - Hypoaesthesia [None]
  - Troponin increased [None]
  - Muscle tightness [None]
  - Paraesthesia [None]
  - Chest pain [None]
  - Back disorder [None]
  - Burning sensation [None]
  - Myocardial infarction [None]

NARRATIVE: CASE EVENT DATE: 20201130
